FAERS Safety Report 8924924 (Version 3)
Quarter: 2013Q3

REPORT INFORMATION
  Report Type: Spontaneous
  Country: US (occurrence: US)
  Receive Date: 20121126
  Receipt Date: 20130726
  Transmission Date: 20140515
  Serious: Yes (Hospitalization)
  Sender: FDA-Public Use
  Company Number: US-BAYER-2012-121443

PATIENT
  Age: 24 Year
  Sex: Female
  Weight: 68.93 kg

DRUGS (1)
  1. YAZ [Suspect]
     Dosage: UNK
     Dates: start: 2001, end: 2002

REACTIONS (9)
  - Deep vein thrombosis [None]
  - Pain in extremity [None]
  - General physical health deterioration [None]
  - Injury [None]
  - Emotional distress [None]
  - Pain [None]
  - Anxiety [None]
  - Fear of disease [None]
  - Hypoaesthesia [None]
